FAERS Safety Report 9434818 (Version 1)
Quarter: 2013Q3

REPORT INFORMATION
  Report Type: Spontaneous
  Country: JP (occurrence: JP)
  Receive Date: 20130801
  Receipt Date: 20130801
  Transmission Date: 20140515
  Serious: Yes (Other)
  Sender: FDA-Public Use
  Company Number: JP-SANOFI-AVENTIS-2013SA037627

PATIENT
  Age: 56 Year
  Sex: Male

DRUGS (1)
  1. IRBETAN [Suspect]
     Indication: HYPERTENSION
     Route: 048
     Dates: start: 20130216, end: 20130308

REACTIONS (2)
  - Hyperkalaemia [Recovering/Resolving]
  - Leukocytosis [Recovering/Resolving]
